FAERS Safety Report 10415363 (Version 1)
Quarter: 2014Q3

REPORT INFORMATION
  Report Type: Spontaneous
  Country: US (occurrence: None)
  Receive Date: 20140826
  Receipt Date: 20140826
  Transmission Date: 20150326
  Serious: Yes (Hospitalization, Disabling, Other)
  Sender: FDA-Public Use
  Company Number: US-ZYDUS-004180

PATIENT
  Age: 23 Year
  Sex: Male

DRUGS (6)
  1. PALIPERIDONE [Suspect]
     Active Substance: PALIPERIDONE
     Route: 048
  2. QUETIAPINE (QUETIAPINE) [Suspect]
     Active Substance: QUETIAPINE
     Route: 048
  3. LITHIUM [Suspect]
     Active Substance: LITHIUM CARBONATE
     Route: 048
  4. BENZATROPINE [Concomitant]
     Active Substance: BENZTROPINE
  5. HALOPERIDOL. [Suspect]
     Active Substance: HALOPERIDOL
     Route: 048
  6. ZIPRASIDONE [Suspect]
     Active Substance: ZIPRASIDONE
     Route: 048

REACTIONS (3)
  - Rhabdomyolysis [None]
  - Tachypnoea [None]
  - Dyspnoea [None]
